FAERS Safety Report 6940572-6 (Version None)
Quarter: 2010Q3

REPORT INFORMATION
  Report Type: 
  Country: None (occurrence: None)
  Receive Date: 20100825
  Receipt Date: 20100817
  Transmission Date: 20110219
  Serious: Yes (Other)
  Sender: FDA-Public Use
  Company Number: US-BAYER-201030871NA

PATIENT

DRUGS (1)
  1. MAGNEVIST [Suspect]
     Indication: PRODUCT USED FOR UNKNOWN INDICATION
     Dates: start: 20100816, end: 20100816

REACTIONS (2)
  - DYSPNOEA [None]
  - OXYGEN SATURATION DECREASED [None]
